FAERS Safety Report 21155799 (Version 1)
Quarter: 2022Q3

REPORT INFORMATION
  Report Type: Other
  Country: AE (occurrence: None)
  Receive Date: 20220801
  Receipt Date: 20220801
  Transmission Date: 20221027
  Serious: Yes (Other)
  Sender: FDA-Public Use
  Company Number: AE-Navinta LLC-000285

PATIENT
  Age: 36 Year
  Sex: Female

DRUGS (2)
  1. INDOMETHACIN [Suspect]
     Active Substance: INDOMETHACIN
     Indication: Bartter^s syndrome
     Dosage: 50 MG/DAY, TAPERED AND STOPPED AT 32 WEEKS 2 DAYS
  2. INDOMETHACIN [Suspect]
     Active Substance: INDOMETHACIN
     Indication: Bartter^s syndrome
     Dosage: 150 MG/DAY (2 MG/KG/DAY) WAS STARTED AT 30 WEEKS AND 2 DAYS

REACTIONS (2)
  - Exposure during pregnancy [Unknown]
  - Polyhydramnios [Unknown]
